FAERS Safety Report 7605311-4 (Version None)
Quarter: 2011Q3

REPORT INFORMATION
  Report Type: 
  Country: None (occurrence: None)
  Receive Date: 20110713
  Receipt Date: 20110204
  Transmission Date: 20111222
  Serious: Yes (Hospitalization)
  Sender: FDA-Public Use
  Company Number: RU-BAYER-2011-011670

PATIENT
  Sex: Female

DRUGS (2)
  1. MIRENA [Suspect]
     Indication: UTERINE LEIOMYOMA
  2. MIRENA [Suspect]
     Indication: ADENOMYOSIS
     Dosage: 20 ?G, CONT
     Route: 015
     Dates: start: 20100401

REACTIONS (2)
  - METRORRHAGIA [None]
  - UTERINE POLYP [None]
